FAERS Safety Report 19668686 (Version 1)
Quarter: 2021Q3

REPORT INFORMATION
  Report Type: Spontaneous
  Country: FR (occurrence: FR)
  Receive Date: 20210806
  Receipt Date: 20210806
  Transmission Date: 20211014
  Serious: Yes (Hospitalization, Other)
  Sender: FDA-Public Use
  Company Number: FR-GLAXOSMITHKLINE-FRCH2021051488

PATIENT
  Age: 19 Year
  Sex: Female

DRUGS (2)
  1. PROTOXYDE D^AZOTE [Suspect]
     Active Substance: NITROUS OXIDE
     Indication: DRUG DEPENDENCE
     Dosage: CONSOMMATION UNE SEMAINE SUR 2 TOUS LES SOIRS DE 2 GROSSES BONBONNES
     Dates: start: 2019
  2. NICOTINE. [Suspect]
     Active Substance: NICOTINE
     Indication: PRODUCT USED FOR UNKNOWN INDICATION
     Dosage: ? PAQUET PAR JOUR DEPUIS 3 ANS
     Dates: start: 2014

REACTIONS (3)
  - Drug dependence [Not Recovered/Not Resolved]
  - Paraesthesia [Recovering/Resolving]
  - Axonal neuropathy [Recovering/Resolving]

NARRATIVE: CASE EVENT DATE: 2019
